FAERS Safety Report 8813538 (Version 1)
Quarter: 2012Q4

REPORT INFORMATION
  Report Type: 
  Country: US (occurrence: US)
  Receive Date: 20120927
  Receipt Date: 20120927
  Transmission Date: 20130627
  Serious: No
  Sender: FDA-Public Use
  Company Number: US-AMGEN-USASP2012052214

PATIENT
  Age: 82 Year
  Sex: Female
  Weight: 48.07 kg

DRUGS (12)
  1. PROLIA [Suspect]
     Indication: OSTEOPOROSIS POSTMENOPAUSAL
     Dosage: 60 mg, q6mo
     Route: 058
     Dates: start: 20120220
  2. CENTRUM /02217401/ [Concomitant]
     Dosage: UNK
  3. FLAXSEED OIL [Concomitant]
     Dosage: UNK
  4. GENTEAL                            /00445101/ [Concomitant]
     Dosage: UNK
     Route: 047
  5. COSAMIN [Concomitant]
     Dosage: UNK
  6. MIRALAX                            /00754501/ [Concomitant]
     Dosage: UNK
  7. VITAMIN D /00107901/ [Concomitant]
     Dosage: UNK
  8. NABUMETONE [Concomitant]
     Dosage: UNK
  9. THIAMINE [Concomitant]
     Dosage: UNK
  10. HYDROCHLOROTHIAZIDE [Concomitant]
     Dosage: UNK
  11. PROBIOTIC                          /06395501/ [Concomitant]
  12. OSCAL                              /00514701/ [Concomitant]
     Dosage: UNK

REACTIONS (1)
  - Tendon rupture [Not Recovered/Not Resolved]
